FAERS Safety Report 23678776 (Version 4)
Quarter: 2024Q2

REPORT INFORMATION
  Report Type: Spontaneous
  Country: US (occurrence: US)
  Receive Date: 20240327
  Receipt Date: 20240509
  Transmission Date: 20240716
  Serious: Yes (Life-Threatening, Other)
  Sender: FDA-Public Use
  Company Number: US-SK LIFE SCIENCE, INC.-SKPVG-2024-000533

PATIENT

DRUGS (18)
  1. XCOPRI [Suspect]
     Active Substance: CENOBAMATE
     Indication: Partial seizures
     Dosage: 12.5 MILLIGRAM, QD
     Route: 048
     Dates: start: 20210818
  2. XCOPRI [Suspect]
     Active Substance: CENOBAMATE
     Indication: Epilepsy
     Dosage: 25 MILLIGRAM, QD
     Route: 048
     Dates: start: 20210902
  3. XCOPRI [Suspect]
     Active Substance: CENOBAMATE
     Indication: Epilepsy
     Dosage: 50 MILLIGRAM, QD
     Route: 048
     Dates: start: 20220103, end: 20230706
  4. XCOPRI [Suspect]
     Active Substance: CENOBAMATE
     Indication: Intellectual disability
     Dosage: 100 MILLIGRAM, QD
     Route: 048
     Dates: start: 20230707, end: 20230926
  5. XCOPRI [Suspect]
     Active Substance: CENOBAMATE
     Indication: Lennox-Gastaut syndrome
     Dosage: 150 MG DAILY
     Route: 048
     Dates: start: 20230927, end: 20231111
  6. XCOPRI [Suspect]
     Active Substance: CENOBAMATE
     Dosage: 175 MG DAILY
     Route: 048
     Dates: start: 20231112, end: 20240111
  7. XCOPRI [Suspect]
     Active Substance: CENOBAMATE
     Dosage: 125 MG DAILY (2.9 MG/KG/DAY)
     Route: 048
     Dates: start: 20240111
  8. LAMOTRIGINE [Suspect]
     Active Substance: LAMOTRIGINE
     Indication: Product used for unknown indication
     Dosage: UNK
     Route: 065
     Dates: start: 20180705
  9. LAMOTRIGINE [Suspect]
     Active Substance: LAMOTRIGINE
     Dosage: 75 MG BID (3.5 MG/KG/DAY)
     Route: 065
     Dates: start: 20221222, end: 20240410
  10. CANNABIDIOL [Suspect]
     Active Substance: CANNABIDIOL
     Indication: Product used for unknown indication
     Dosage: 0.6 ML, BID
     Route: 065
     Dates: start: 20201002
  11. CANNABIDIOL [Suspect]
     Active Substance: CANNABIDIOL
     Dosage: UNK
     Route: 065
  12. CANNABIDIOL [Suspect]
     Active Substance: CANNABIDIOL
     Dosage: 0.5ML BID
     Route: 065
     Dates: end: 20240307
  13. CLOBAZAM [Concomitant]
     Active Substance: CLOBAZAM
     Indication: Product used for unknown indication
     Dosage: 3.5 MILLILITER, BID (2.5MG/ML)
     Route: 065
     Dates: start: 202401
  14. CLOBAZAM [Concomitant]
     Active Substance: CLOBAZAM
     Dosage: 2.5ML IN AM AND 3ML IN PM
     Route: 065
     Dates: start: 20240307
  15. ETHOSUXIMIDE [Concomitant]
     Active Substance: ETHOSUXIMIDE
     Indication: Product used for unknown indication
     Dosage: UNK
     Route: 065
     Dates: start: 20120702
  16. ETHOSUXIMIDE [Concomitant]
     Active Substance: ETHOSUXIMIDE
     Dosage: 300 MG BID (14 MG/KG/DAY)
     Route: 065
     Dates: start: 20231228, end: 202403
  17. CYPROHEPTADINE [Concomitant]
     Active Substance: CYPROHEPTADINE
     Indication: Product used for unknown indication
     Dosage: 4 MG BID
     Route: 065
     Dates: start: 201811
  18. NORETHINDRONE                      /00044901/ [Concomitant]
     Indication: Product used for unknown indication
     Dosage: 5 MILLIGRAM, QD
     Route: 065
     Dates: start: 201909

REACTIONS (6)
  - Cardiac arrest [Recovered/Resolved]
  - Bradycardia [Recovered/Resolved]
  - Product use issue [Not Recovered/Not Resolved]
  - Off label use [Recovered/Resolved]
  - Off label use [Not Recovered/Not Resolved]
  - Drug interaction [Recovered/Resolved]

NARRATIVE: CASE EVENT DATE: 20210818
